FAERS Safety Report 8189745-8 (Version None)
Quarter: 2012Q1

REPORT INFORMATION
  Report Type: 
  Country: None (occurrence: None)
  Receive Date: 20120305
  Receipt Date: 20120224
  Transmission Date: 20120608
  Serious: Yes (Other)
  Sender: FDA-Public Use
  Company Number: AUR-APL-2011-05598

PATIENT
  Age: 80 Year
  Sex: Female

DRUGS (8)
  1. METOPROLOL TARTRATE [Concomitant]
  2. AMLODIPINE [Concomitant]
  3. ZANTAC [Concomitant]
  4. PREVACID [Concomitant]
  5. CIPROFLOXACIN [Suspect]
     Indication: URINARY TRACT INFECTION
     Dosage: 500 MG (250 MG, 2 IN 1 D), ORAL
     Route: 048
     Dates: start: 20111017
  6. ENALAPRIL MALEATE [Concomitant]
  7. PRAVASTATIN [Concomitant]
  8. LEVEMIR [Concomitant]

REACTIONS (6)
  - INCORRECT PRODUCT STORAGE [None]
  - SIALOADENITIS [None]
  - WEIGHT DECREASED [None]
  - HERPES ZOSTER [None]
  - TRISMUS [None]
  - DYSKINESIA [None]
